FAERS Safety Report 24698250 (Version 1)
Quarter: 2024Q4

REPORT INFORMATION
  Report Type: Spontaneous
  Country: JP (occurrence: JP)
  Receive Date: 20241204
  Receipt Date: 20241204
  Transmission Date: 20250114
  Serious: Yes (Other)
  Sender: BOEHRINGER INGELHEIM
  Company Number: JP-NBI-2024-BI-065194

PATIENT
  Age: 36 Year
  Sex: Male

DRUGS (1)
  1. SPEVIGO [Suspect]
     Active Substance: SPESOLIMAB-SBZO
     Indication: Pustular psoriasis
     Dates: start: 20241004, end: 20241004

REACTIONS (2)
  - Drug-induced liver injury [Recovered/Resolved]
  - Lymphomatoid papulosis [Recovered/Resolved]

NARRATIVE: CASE EVENT DATE: 20241007
